FAERS Safety Report 15306755 (Version 1)
Quarter: 2018Q3

REPORT INFORMATION
  Report Type: Spontaneous
  Country: US (occurrence: US)
  Receive Date: 20180822
  Receipt Date: 20180822
  Transmission Date: 20181010
  Serious: Yes (Other)
  Sender: FDA-Public Use
  Company Number: US-AMGEN-USASP2018114001

PATIENT
  Sex: Male

DRUGS (1)
  1. ENBREL [Suspect]
     Active Substance: ETANERCEPT
     Indication: ANKYLOSING SPONDYLITIS
     Dosage: 50 MG, QWK
     Route: 065
     Dates: start: 2016

REACTIONS (9)
  - Injection site pain [Unknown]
  - Fatigue [Unknown]
  - Uveitis [Unknown]
  - Injection site swelling [Unknown]
  - Migraine with aura [Unknown]
  - Retinal tear [Unknown]
  - Wrong technique in product usage process [Unknown]
  - Dyschromatopsia [Unknown]
  - Respiratory disorder [Unknown]

NARRATIVE: CASE EVENT DATE: 2018
